FAERS Safety Report 13954948 (Version 1)
Quarter: 2017Q3

REPORT INFORMATION
  Report Type: Spontaneous
  Country: US (occurrence: US)
  Receive Date: 20170911
  Receipt Date: 20170911
  Transmission Date: 20171128
  Serious: Yes (Disabling, Other)
  Sender: FDA-Public Use
  Company Number: None

PATIENT
  Age: 61 Year
  Sex: Female
  Weight: 57.15 kg

DRUGS (11)
  1. CLONOPIN [Concomitant]
     Active Substance: CLONAZEPAM
  2. VITAMIN C [Concomitant]
     Active Substance: ASCORBIC ACID
  3. FISH OIL [Concomitant]
     Active Substance: FISH OIL
  4. GADOLINIUM [Suspect]
     Active Substance: GADOLINIUM
     Indication: NUCLEAR MAGNETIC RESONANCE IMAGING
  5. GADOLINIUM [Suspect]
     Active Substance: GADOLINIUM
     Indication: NUCLEAR MAGNETIC RESONANCE IMAGING BRAIN
  6. VIMPAT [Concomitant]
     Active Substance: LACOSAMIDE
  7. VITAMIN D [Concomitant]
     Active Substance: CHOLECALCIFEROL
  8. MULTIVITAMIN [Concomitant]
     Active Substance: VITAMINS
  9. COD LIVER OIL [Concomitant]
     Active Substance: COD LIVER OIL
  10. VALIUM [Concomitant]
     Active Substance: DIAZEPAM
  11. MAGNESIUM [Concomitant]
     Active Substance: MAGNESIUM

REACTIONS (1)
  - Drug level increased [None]

NARRATIVE: CASE EVENT DATE: 20150901
